FAERS Safety Report 6163233-2 (Version None)
Quarter: 2009Q2

REPORT INFORMATION
  Report Type: 
  Country: None (occurrence: None)
  Receive Date: 20090420
  Receipt Date: 20090420
  Transmission Date: 20091009
  Serious: Yes (Hospitalization)
  Sender: FDA-Public Use
  Company Number: None

PATIENT
  Age: 66 Year
  Sex: Male
  Weight: 69.4 kg

DRUGS (1)
  1. RILUZOLE [Suspect]
     Indication: AMYOTROPHIC LATERAL SCLEROSIS
     Dosage: 1 TAB BID PO
     Route: 048
     Dates: start: 20090102, end: 20090129

REACTIONS (3)
  - ANOREXIA [None]
  - BACTERIA STOOL IDENTIFIED [None]
  - CLOSTRIDIUM DIFFICILE TOXIN TEST POSITIVE [None]
